FAERS Safety Report 8278559-6 (Version None)
Quarter: 2012Q2

REPORT INFORMATION
  Report Type: 
  Country: None (occurrence: None)
  Receive Date: 20120412
  Receipt Date: 20110509
  Transmission Date: 20120825
  Serious: No
  Sender: FDA-Public Use
  Company Number: US-ASTRAZENECA-2011SE27546

PATIENT
  Sex: Male

DRUGS (16)
  1. AMLODIPINE [Concomitant]
     Indication: BLOOD PRESSURE INCREASED
     Dates: start: 20070401
  2. ENALAPRIL MALEATE [Concomitant]
     Indication: BLOOD PRESSURE INCREASED
     Dates: start: 20070501
  3. SEROQUEL [Suspect]
     Indication: TACHYPHRENIA
     Route: 048
     Dates: start: 20110401
  4. CELEXA [Concomitant]
     Indication: DEPRESSION
     Dates: start: 20070401
  5. SPIRIVA [Concomitant]
     Indication: CHRONIC OBSTRUCTIVE PULMONARY DISEASE
     Dates: start: 20100201
  6. ASPIRIN [Concomitant]
     Indication: ANTICOAGULANT THERAPY
     Dates: start: 20080501
  7. NEXIUM [Suspect]
     Indication: GASTROOESOPHAGEAL REFLUX DISEASE
     Route: 048
     Dates: start: 20100801
  8. TRAZODONE HCL [Concomitant]
     Indication: ANXIETY
     Dates: start: 20100301
  9. TRAZODONE HCL [Concomitant]
     Indication: INSOMNIA
     Dates: start: 20100301
  10. CARISOPRODOL [Concomitant]
     Indication: PAIN
     Dates: start: 20110101
  11. SEROQUEL [Suspect]
     Indication: HALLUCINATION
     Route: 048
     Dates: start: 20110401
  12. CRESTOR [Suspect]
     Indication: BLOOD CHOLESTEROL INCREASED
     Route: 048
     Dates: start: 20100101
  13. DEPAKOTE [Concomitant]
     Indication: BIPOLAR DISORDER
     Dates: start: 20100801
  14. BUSPIRONE HCL [Concomitant]
     Indication: ANXIETY
     Dates: start: 20100101
  15. VENTELIN [Concomitant]
     Indication: CHRONIC OBSTRUCTIVE PULMONARY DISEASE
     Dates: start: 20110401
  16. LIDODERM [Concomitant]
     Indication: PAIN
     Dates: start: 20100801

REACTIONS (3)
  - CONSTIPATION [None]
  - FAECES HARD [None]
  - SOMNOLENCE [None]
